FAERS Safety Report 10377999 (Version 1)
Quarter: 2014Q3

REPORT INFORMATION
  Report Type: Spontaneous
  Country: IN (occurrence: None)
  Receive Date: 20140807
  Receipt Date: 20140807
  Transmission Date: 20150326
  Serious: Yes (Other)
  Sender: FDA-Public Use
  Company Number: IMP_07757_2014

PATIENT
  Age: 56 Year
  Sex: Male

DRUGS (1)
  1. SODIUM VALPROATE (SODIUM VALPROATE) [Suspect]
     Active Substance: VALPROATE SODIUM
     Indication: GENERALISED TONIC-CLONIC SEIZURE

REACTIONS (15)
  - Muscle rigidity [None]
  - Encephalopathy [None]
  - Balance disorder [None]
  - Dysarthria [None]
  - Dysphonia [None]
  - Toxicity to various agents [None]
  - Gliosis [None]
  - Ammonia increased [None]
  - Gaze palsy [None]
  - Somnolence [None]
  - Parkinsonism [None]
  - Bradykinesia [None]
  - Tremor [None]
  - Cognitive disorder [None]
  - Cerebral atrophy [None]
